FAERS Safety Report 8481329-7 (Version None)
Quarter: 2012Q3

REPORT INFORMATION
  Report Type: 
  Country: None (occurrence: None)
  Receive Date: 20120702
  Receipt Date: 20120622
  Transmission Date: 20120928
  Serious: Yes (Other)
  Sender: FDA-Public Use
  Company Number: US-JNJFOC-20120600692

PATIENT
  Sex: Female

DRUGS (11)
  1. ALL OTHER THERAPEUTIC PRODUCTS [Concomitant]
  2. NEXIUM [Concomitant]
  3. FISH OIL [Concomitant]
  4. AMLODIPINE [Concomitant]
  5. REMICADE [Suspect]
     Indication: RHEUMATOID ARTHRITIS
     Route: 042
  6. LEVOTHYROXINE SODIUM [Concomitant]
  7. LISINOPRIL [Concomitant]
  8. PRAVASTATIN [Concomitant]
  9. MULTI-VITAMINS [Concomitant]
  10. DIGOXIN [Concomitant]
     Dosage: ADMINISTERED ^M-W-F^
  11. CALCIUM AND VIT D [Concomitant]

REACTIONS (1)
  - MALIGNANT MELANOMA IN SITU [None]
